FAERS Safety Report 4342852-X (Version None)
Quarter: 2004Q2

REPORT INFORMATION
  Report Type: 
  Country: None (occurrence: None)
  Receive Date: 20040420
  Receipt Date: 20040420
  Transmission Date: 20050107
  Serious: Yes (Hospitalization)
  Sender: FDA-Public Use
  Company Number: None

PATIENT
  Sex: Male

DRUGS (2)
  1. PROGRAF [Suspect]
     Indication: IMMUNOSUPPRESSION
  2. VORICONAZOLE [Suspect]
     Indication: INFECTION

REACTIONS (3)
  - CONVULSION [None]
  - MENTAL STATUS CHANGES [None]
  - NEUROTOXICITY [None]
